FAERS Safety Report 6681145-2 (Version None)
Quarter: 2010Q2

REPORT INFORMATION
  Report Type: 
  Country: None (occurrence: None)
  Receive Date: 20100412
  Receipt Date: 20080717
  Transmission Date: 20101027
  Serious: Yes (Other)
  Sender: FDA-Public Use
  Company Number: 2009-2933

PATIENT
  Sex: Male

DRUGS (3)
  1. APO-GO AMPOULES  (APO-GO) (APOMORPHINE HYDROCHLORIDE) [Suspect]
     Indication: DRUG USE FOR UNKNOWN INDICATION
     Dosage: 108 MG (4.5 MG, 4.5 MG/HR OVER 24 HOURS), SUBCUTANEOUS, 3 MG, 1 IN 1 HR, SUBCUTANEOUS
     Route: 058
     Dates: end: 20070101
  2. APO-GO AMPOULES  (APO-GO) (APOMORPHINE HYDROCHLORIDE) [Suspect]
     Indication: DRUG USE FOR UNKNOWN INDICATION
     Dosage: 108 MG (4.5 MG, 4.5 MG/HR OVER 24 HOURS), SUBCUTANEOUS, 3 MG, 1 IN 1 HR, SUBCUTANEOUS
     Route: 058
     Dates: start: 20070101
  3. SINEMET [Concomitant]

REACTIONS (2)
  - ABNORMAL BEHAVIOUR [None]
  - PSYCHOTIC DISORDER [None]
